FAERS Safety Report 6515386-1 (Version None)
Quarter: 2009Q4

REPORT INFORMATION
  Report Type: 
  Country: None (occurrence: None)
  Receive Date: 20091223
  Receipt Date: 20091211
  Transmission Date: 20100525
  Serious: Yes (Other)
  Sender: FDA-Public Use
  Company Number: PHHY2009NL55077

PATIENT
  Sex: Female

DRUGS (14)
  1. ZOMETA [Suspect]
     Dosage: UNK
     Dates: start: 20080205
  2. ZOMETA [Suspect]
     Dosage: UNK
     Dates: start: 20080305
  3. ZOMETA [Suspect]
     Dosage: UNK
     Dates: start: 20080402
  4. ZOMETA [Suspect]
     Dosage: UNK
     Dates: start: 20080429
  5. ZOMETA [Suspect]
     Dosage: UNK
     Dates: start: 20080528
  6. ZOMETA [Suspect]
     Dosage: UNK
     Dates: start: 20080625
  7. ZOMETA [Suspect]
     Dosage: UNK
     Dates: start: 20080723
  8. ZOMETA [Suspect]
     Dosage: UNK
     Dates: start: 20080820
  9. ZOMETA [Suspect]
     Dosage: UNK
     Dates: start: 20080917
  10. ZOMETA [Suspect]
     Dosage: UNK
     Dates: start: 20081209
  11. ZOMETA [Suspect]
     Dosage: UNK
     Dates: start: 20090116
  12. ZOMETA [Suspect]
     Dosage: UNK
     Dates: start: 20090414
  13. ZOMETA [Suspect]
     Dosage: UNK
     Dates: start: 20090630
  14. ZOMETA [Suspect]
     Dosage: UNK
     Dates: start: 20090921

REACTIONS (1)
  - OSTEITIS [None]
